FAERS Safety Report 5136613-1 (Version None)
Quarter: 2006Q4

REPORT INFORMATION
  Report Type: 
  Country: None (occurrence: None)
  Receive Date: 20061027
  Receipt Date: 20050527
  Transmission Date: 20070319
  Serious: Yes (Death, Life-Threatening, Hospitalization)
  Sender: FDA-Public Use
  Company Number: BE-ABBOTT-05P-013-0301876-01

PATIENT
  Sex: Female
  Weight: 70 kg

DRUGS (16)
  1. HUMIRA [Suspect]
     Indication: RHEUMATOID ARTHRITIS
     Route: 058
     Dates: start: 20041008, end: 20050406
  2. DOMPERIDONE [Concomitant]
     Indication: DRUG USE FOR UNKNOWN INDICATION
  3. MADOPAR [Concomitant]
     Indication: DRUG USE FOR UNKNOWN INDICATION
  4. CARBOMER [Concomitant]
     Indication: DRUG USE FOR UNKNOWN INDICATION
     Dates: start: 20050412
  5. GLYCERYL TRINITRATE [Concomitant]
     Indication: DRUG USE FOR UNKNOWN INDICATION
     Dates: start: 20050412
  6. AMLODIPINE BESYLATE [Concomitant]
     Indication: DRUG USE FOR UNKNOWN INDICATION
     Dates: start: 20050412
  7. CALCITONIN-SALMON [Concomitant]
     Indication: DRUG USE FOR UNKNOWN INDICATION
  8. VENLAFAXINE HYDROCHLORIDE [Concomitant]
     Indication: DRUG USE FOR UNKNOWN INDICATION
  9. FOLIC ACID [Concomitant]
     Indication: DRUG USE FOR UNKNOWN INDICATION
     Dates: start: 20020321
  10. ERGOCALCIFEROL [Concomitant]
     Indication: DRUG USE FOR UNKNOWN INDICATION
     Dates: start: 20050412
  11. RANITIDINE HYDROCHLORIDE [Concomitant]
     Indication: DRUG USE FOR UNKNOWN INDICATION
     Dates: start: 20050101
  12. DIHYDRALAZINE SULFATE [Concomitant]
     Indication: DRUG USE FOR UNKNOWN INDICATION
  13. HYDROCORTISONE ACETATE [Concomitant]
     Indication: DRUG USE FOR UNKNOWN INDICATION
  14. POVIDONE IODINE [Concomitant]
     Indication: DRUG USE FOR UNKNOWN INDICATION
  15. MEPITEL [Concomitant]
     Indication: DRUG USE FOR UNKNOWN INDICATION
  16. HUMIRA [Concomitant]
     Indication: RHEUMATOID ARTHRITIS
     Route: 058
     Dates: start: 20040901

REACTIONS (5)
  - ANOREXIA [None]
  - CHOLECYSTITIS [None]
  - FALL [None]
  - RENAL FAILURE ACUTE [None]
  - SPINAL FRACTURE [None]
